FAERS Safety Report 4927948-3 (Version None)
Quarter: 2006Q1

REPORT INFORMATION
  Report Type: 
  Country: None (occurrence: None)
  Receive Date: 20060223
  Receipt Date: 20060216
  Transmission Date: 20060701
  Serious: Yes (Hospitalization)
  Sender: FDA-Public Use
  Company Number: 2006019066

PATIENT
  Age: 80 Year
  Sex: Female
  Weight: 56 kg

DRUGS (4)
  1. NEURONTIN [Suspect]
     Indication: POLYNEUROPATHY
     Dosage: 300 MG (100 MG, 3 IN 1 D); ORAL
     Route: 048
     Dates: start: 20060120, end: 20060124
  2. EVISTA [Concomitant]
  3. LIPITOR [Concomitant]
  4. REDOMEX (AMITRIPTYLINE HYDROCHLORIDE) [Concomitant]

REACTIONS (2)
  - DRUG HYPERSENSITIVITY [None]
  - RASH PRURITIC [None]
